FAERS Safety Report 16472171 (Version 1)
Quarter: 2019Q2

REPORT INFORMATION
  Report Type: Spontaneous
  Country: GB (occurrence: GB)
  Receive Date: 20190625
  Receipt Date: 20190625
  Transmission Date: 20190711
  Serious: Yes (Death, Hospitalization, Other)
  Sender: FDA-Public Use
  Company Number: GB-AUROBINDO-AUR-APL-2019-035344

PATIENT

DRUGS (1)
  1. AMIODARONE [Suspect]
     Active Substance: AMIODARONE
     Indication: ATRIAL FIBRILLATION
     Dosage: 200 MILLIGRAM
     Route: 048
     Dates: start: 20190117, end: 20190130

REACTIONS (7)
  - Acute kidney injury [Unknown]
  - Chills [Unknown]
  - Dyspnoea [Unknown]
  - Respiratory failure [Unknown]
  - Cough [Unknown]
  - Acute lung injury [Fatal]
  - Liver function test abnormal [Unknown]

NARRATIVE: CASE EVENT DATE: 20190129
